FAERS Safety Report 9780177 (Version 2)
Quarter: 2013Q4

REPORT INFORMATION
  Report Type: Spontaneous
  Country: CH (occurrence: CH)
  Receive Date: 20131223
  Receipt Date: 20131223
  Transmission Date: 20140711
  Serious: Yes (Other)
  Sender: FDA-Public Use
  Company Number: CH-ABBVIE-13P-151-1157045-00

PATIENT
  Age: 35 Year
  Sex: Female
  Weight: 90.5 kg

DRUGS (3)
  1. HUMIRA [Suspect]
     Indication: CROHN^S DISEASE
     Dates: start: 201304
  2. IMUREK [Concomitant]
     Indication: IMMUNOSUPPRESSION
  3. CIPRALEX [Concomitant]
     Indication: DEPRESSION

REACTIONS (9)
  - Injection site warmth [Recovered/Resolved]
  - Injection site swelling [Recovered/Resolved]
  - Injection site pruritus [Recovered/Resolved]
  - Injection site pain [Recovered/Resolved]
  - Injection site erythema [Recovered/Resolved]
  - Injection site reaction [Recovered/Resolved]
  - Injection site induration [Recovered/Resolved]
  - Pruritus [Recovered/Resolved]
  - Anxiety [Unknown]
